FAERS Safety Report 8275865-6 (Version None)
Quarter: 2012Q2

REPORT INFORMATION
  Report Type: 
  Country: None (occurrence: None)
  Receive Date: 20120410
  Receipt Date: 20120410
  Transmission Date: 20120825
  Serious: No
  Sender: FDA-Public Use
  Company Number: None

PATIENT
  Age: 67 Year
  Sex: Female

DRUGS (1)
  1. ZELBORAF [Suspect]
     Dosage: 960 MG BID PO
     Route: 048
     Dates: start: 20111215, end: 20120405

REACTIONS (2)
  - DIARRHOEA [None]
  - MELANOCYTIC NAEVUS [None]
